FAERS Safety Report 4637192-5 (Version None)
Quarter: 2005Q2

REPORT INFORMATION
  Report Type: 
  Country: None (occurrence: None)
  Receive Date: 20050416
  Receipt Date: 20050329
  Transmission Date: 20051028
  Serious: Yes (Hospitalization)
  Sender: FDA-Public Use
  Company Number: PHHO2005US05228

PATIENT
  Age: 53 Year
  Sex: Male

DRUGS (15)
  1. FTY720 [Suspect]
     Indication: RENAL TRANSPLANT
     Dosage: 2.5 MG DAILY
     Dates: start: 20050215, end: 20050331
  2. PREDNISONE [Concomitant]
     Indication: RENAL TRANSPLANT
     Dosage: 5 MG, QD
     Dates: start: 20050317
  3. ALLOPURINOL [Concomitant]
     Dosage: 100 MG, QD
     Dates: start: 20050218
  4. AMLODIPINE [Concomitant]
     Dosage: 10 MG, QD
     Dates: start: 20050218
  5. DOXAZOSIN [Concomitant]
     Dosage: 8 MG, QD
     Dates: start: 20050218
  6. VALGANCICLOVIR [Concomitant]
     Dosage: 450 MG, QD
     Dates: start: 20050218
  7. BACTRIM [Concomitant]
     Dates: start: 20050218
  8. RANITIDINE [Concomitant]
     Dosage: 150 MG, QD
     Dates: start: 20050218
  9. CALCIUM CARBONATE [Concomitant]
     Dosage: 150 MG, QD
     Dates: start: 20050218
  10. INSULIN [Concomitant]
  11. LOVASTATIN [Concomitant]
     Dosage: 20 MG, QD
     Dates: start: 20050317
  12. CLONIDINE [Concomitant]
     Dosage: 0.2 MG, TID
     Dates: start: 20050317
  13. FUROSEMIDE [Concomitant]
     Dosage: 40 MG, QD
     Dates: start: 20050317
  14. PROPRANOLOL [Concomitant]
     Dosage: 10 MG, TID
     Dates: start: 20050321
  15. NEORAL [Suspect]
     Indication: RENAL TRANSPLANT
     Dosage: 125 MG, BID
     Dates: start: 20050215

REACTIONS (8)
  - ANAEMIA [None]
  - ANASTOMOTIC STENOSIS [None]
  - BLOOD CREATININE INCREASED [None]
  - DYSPNOEA [None]
  - FLUID OVERLOAD [None]
  - HYPOTENSION [None]
  - RENAL ARTERY STENOSIS [None]
  - RENAL FAILURE ACUTE [None]
